FAERS Safety Report 16208579 (Version 1)
Quarter: 2019Q2

REPORT INFORMATION
  Report Type: Spontaneous
  Country: HU (occurrence: HU)
  Receive Date: 20190417
  Receipt Date: 20190417
  Transmission Date: 20190711
  Serious: Yes (Other)
  Sender: FDA-Public Use
  Company Number: HU-PFIZER INC-2019137270

PATIENT
  Sex: Male

DRUGS (16)
  1. XANAX XR [Interacting]
     Active Substance: ALPRAZOLAM
     Dosage: 1 DF (1X1 TABLET), DAILY
  2. DULODET [Concomitant]
     Indication: DEPRESSION
     Dosage: 1 DF (1X1 TABLET), DAILY
  3. SPITOMIN [Concomitant]
     Dosage: 1 DF (2X1 TABLET), 2X/DAY
  4. XANAX XR [Suspect]
     Active Substance: ALPRAZOLAM
     Indication: MIXED ANXIETY AND DEPRESSIVE DISORDER
     Dosage: 1 DF (2X1 TABLET), 2X/DAY
  5. VENTOLIN [Concomitant]
     Active Substance: ALBUTEROL SULFATE
     Dosage: 2X1 PUFFS, FORMULATION: OVERPRESSURE INHALATION SUSPENSION
  6. SCIPPA [Concomitant]
     Indication: DEPRESSION
     Dosage: 1 DF (1X1 TABLET), DAILY
  7. MIRZATEN [Concomitant]
     Active Substance: MIRTAZAPINE
     Indication: DEPRESSION
     Dosage: 1 DF (1X1 TABLET), DAILY
  8. ANEPTINEX [Concomitant]
     Indication: DEPRESSION
     Dosage: 1 DF (3X1 TABLET), 3X/DAY
  9. BERODUAL [Concomitant]
     Active Substance: FENOTEROL HYDROBROMIDE\IPRATROPIUM BROMIDE
     Dosage: UNK UNK, 2X/DAY
  10. XANAX XR [Interacting]
     Active Substance: ALPRAZOLAM
     Dosage: 1 DF (1X1 TABLET), DAILY
     Route: 048
  11. TIAPRIDAL [Concomitant]
     Active Substance: TIAPRIDE HYDROCHLORIDE
     Indication: MIXED ANXIETY AND DEPRESSIVE DISORDER
     Dosage: 800 MG, DAILY (4X2 TABLETS)
  12. MIRZATEN Q TAB [Concomitant]
     Active Substance: MIRTAZAPINE
     Indication: DEPRESSION
     Dosage: 1 DF (1X1 TABLET), DAILY
  13. ZOLPIDEM-RATIOPHARM [Concomitant]
  14. XANAX XR [Interacting]
     Active Substance: ALPRAZOLAM
     Dosage: 1 DF (2X1 TABLET), 2X/DAY
     Route: 048
  15. XANAX XR [Interacting]
     Active Substance: ALPRAZOLAM
     Dosage: 1 DF (3X1 TABLET), 2X/DAY
  16. SEDUXEN [DIAZEPAM] [Concomitant]
     Indication: DEPRESSION
     Dosage: 2X1

REACTIONS (7)
  - Altered state of consciousness [Unknown]
  - Contraindicated product administered [Unknown]
  - Abnormal behaviour [Unknown]
  - Memory impairment [Unknown]
  - Delirium [Unknown]
  - Aggression [Unknown]
  - Alcohol interaction [Unknown]
